FAERS Safety Report 10149617 (Version 3)
Quarter: 2014Q2

REPORT INFORMATION
  Report Type: Spontaneous
  Country: US (occurrence: US)
  Receive Date: 20140502
  Receipt Date: 20140529
  Transmission Date: 20141212
  Serious: No
  Sender: FDA-Public Use
  Company Number: US-PFIZER INC-2014117524

PATIENT
  Age: 80 Year
  Sex: Female
  Weight: 52.6 kg

DRUGS (8)
  1. XALKORI [Suspect]
     Indication: LUNG NEOPLASM MALIGNANT
     Dosage: 250 MG, 2X/DAY (ONE TABLET TWICE DAILY)
     Route: 048
     Dates: start: 20140321
  2. XALKORI [Suspect]
     Dosage: 250 MG, DAILY
     Route: 048
     Dates: start: 20140410
  3. NEXIUM [Concomitant]
     Dosage: 40 MG, 1X/DAY
     Route: 048
     Dates: start: 20140211
  4. LANOXIN [Concomitant]
     Dosage: 0.125 UNK, UNK
     Dates: start: 20140211
  5. PERCOCET [Concomitant]
     Dosage: 2.5 MG, 2X/DAY
     Dates: start: 20140409
  6. NEURONTIN [Concomitant]
     Dosage: 300 MG (200 MG AND 100), 3X/DAY
     Dates: start: 20140409
  7. MIRALAX [Concomitant]
     Dosage: (1/2 PK), 1X/DAY
     Dates: start: 20140409
  8. COLACE [Concomitant]
     Dosage: 200 MG, DAILY
     Dates: start: 20140211

REACTIONS (7)
  - Dyspepsia [Unknown]
  - Local swelling [Unknown]
  - Visual impairment [Unknown]
  - Dysgeusia [Unknown]
  - Fatigue [Unknown]
  - Nausea [Unknown]
  - Abdominal discomfort [Unknown]
